FAERS Safety Report 7775534-2 (Version None)
Quarter: 2011Q3

REPORT INFORMATION
  Report Type: 
  Country: None (occurrence: None)
  Receive Date: 20110921
  Receipt Date: 20110215
  Transmission Date: 20111222
  Serious: Yes (Hospitalization, Disabling, Other)
  Sender: FDA-Public Use
  Company Number: 2010SP053033

PATIENT
  Age: 35 Year
  Sex: Female
  Weight: 83.9154 kg

DRUGS (9)
  1. NUVARING [Suspect]
     Indication: CONTRACEPTION
     Dates: start: 20060101, end: 20081001
  2. NUVARING [Suspect]
  3. NUVARING [Suspect]
  4. NUVARING [Suspect]
  5. NUVARING [Suspect]
  6. NUVARING [Suspect]
  7. NUVARING [Suspect]
  8. NUVARING [Suspect]
  9. NUVARING [Suspect]

REACTIONS (27)
  - DEEP VEIN THROMBOSIS [None]
  - LIGAMENT SPRAIN [None]
  - MOOD SWINGS [None]
  - CONVERSION DISORDER [None]
  - LUNG INFILTRATION [None]
  - TRICUSPID VALVE INCOMPETENCE [None]
  - ACCIDENT AT WORK [None]
  - SPINAL OSTEOARTHRITIS [None]
  - THROMBOSIS [None]
  - INTERVERTEBRAL DISC PROTRUSION [None]
  - ASTHENIA [None]
  - PULMONARY ARTERIAL HYPERTENSION [None]
  - MIGRAINE [None]
  - RENAL DISORDER [None]
  - MITRAL VALVE INCOMPETENCE [None]
  - PULMONARY EMBOLISM [None]
  - MULTIPLE INJURIES [None]
  - HEPATIC LESION [None]
  - RENAL CYST [None]
  - VAGINAL HAEMORRHAGE [None]
  - PULMONARY HYPERTENSION [None]
  - BRONCHOSPASM [None]
  - VOCAL CORD DISORDER [None]
  - LEFT VENTRICULAR HYPERTROPHY [None]
  - MITRAL VALVE SCLEROSIS [None]
  - ASTHMA [None]
  - ANXIETY [None]
